FAERS Safety Report 4430791-5 (Version None)
Quarter: 2004Q3

REPORT INFORMATION
  Report Type: 
  Country: None (occurrence: None)
  Receive Date: 20040823
  Receipt Date: 20040812
  Transmission Date: 20050211
  Serious: Yes (Hospitalization)
  Sender: FDA-Public Use
  Company Number: FR-BRISTOL-MYERS SQUIBB COMPANY-12668729

PATIENT
  Age: 13 Year
  Sex: Female
  Weight: 45 kg

DRUGS (6)
  1. BLEOMYCIN SULFATE [Suspect]
     Indication: OVARIAN CANCER
     Dosage: CHEMOTHERAPY COMMENCED ON 06-MAY-2004
     Route: 042
     Dates: start: 20040527, end: 20040527
  2. ETOPOSIDE TEVA [Suspect]
     Indication: OVARIAN CANCER
     Dosage: CHEMOTHERAPY COMMENCED ON 06-MAY-2004
     Route: 042
     Dates: start: 20040527, end: 20040527
  3. CISPLATYL [Suspect]
     Indication: OVARIAN CANCER
     Dosage: CHEMOTHERAPY COMMENCED ON 06-MAY-2004
     Route: 042
     Dates: start: 20040527, end: 20040527
  4. CHLORPROMAZINE [Suspect]
  5. METHYLPREDNISOLONE [Concomitant]
     Dates: start: 20040527, end: 20040527
  6. ONDANSETRON HCL [Concomitant]
     Dates: start: 20040527, end: 20040527

REACTIONS (1)
  - HYPONATRAEMIA [None]
